FAERS Safety Report 6313434-5 (Version None)
Quarter: 2009Q3

REPORT INFORMATION
  Report Type: 
  Country: None (occurrence: None)
  Receive Date: 20090814
  Receipt Date: 20090810
  Transmission Date: 20100115
  Serious: Yes (Hospitalization)
  Sender: FDA-Public Use
  Company Number: GXKR2009DE09042

PATIENT
  Age: 80 Year
  Sex: Female
  Weight: 59 kg

DRUGS (16)
  1. MTX HEXAL (NGX) (METHOTREXATE) SOLUTION FOR INJECTION [Suspect]
     Indication: RHEUMATOID ARTHRITIS
     Dosage: 10 ML, QW, SUBCUTANEOUS
     Route: 058
     Dates: start: 20081101, end: 20090504
  2. AMLODIPINE [Suspect]
     Indication: HYPERTENSION
     Dosage: 5 MG, QD, ORAL
     Route: 048
     Dates: start: 20081101, end: 20090515
  3. CORDANUM (TALINOLOL) FILM-COATED TABLET [Suspect]
     Indication: TACHYARRHYTHMIA
     Dosage: 50 MG, QD, ORAL
     Route: 048
     Dates: start: 20081101, end: 20090504
  4. DELIX (RAMIPRIL) TABLET [Suspect]
     Indication: HYPERTENSION
     Dosage: 1.25 MG, QD, 2.5 MG, QD, ORAL
     Route: 048
     Dates: start: 20000101
  5. DELIX (RAMIPRIL) TABLET [Suspect]
     Indication: HYPERTENSION
     Dosage: 1.25 MG, QD, 2.5 MG, QD, ORAL
     Route: 048
     Dates: start: 20090513
  6. FALITHROM (NGX) (PHENPROCOUMON) FILM-COATED TABLET [Suspect]
     Indication: TACHYARRHYTHMIA
     Dosage: 3 MG, QD, ORAL
     Route: 048
     Dates: start: 20081101, end: 20090504
  7. OMEPRAZOLE [Suspect]
     Indication: PROPHYLAXIS AGAINST GASTROINTESTINAL ULCER
     Dosage: 20 MG, QD, ORAL
     Route: 048
     Dates: start: 20081101, end: 20090503
  8. SEROQUEL [Suspect]
     Indication: RESTLESSNESS
     Dosage: 25 MG, QD
     Dates: start: 20081101
  9. SIMVASTATIN [Suspect]
     Indication: HYPERLIPIDAEMIA
     Dosage: 40 MG, QD, ORAL
     Route: 048
     Dates: start: 20081101, end: 20090505
  10. TORSEMIDE [Suspect]
     Indication: HYPERTENSION
     Dosage: 200 MG, QD, ORAL
     Route: 048
     Dates: start: 20081101
  11. ACTONEL PLUS CALCIUM (CALCIUM CARBONATE, RISEDRONATE SODIUM) [Concomitant]
  12. DIGITOXIN INJ [Concomitant]
  13. DREISAFER (ASCORBIC ACID, FERROUS SULFATE EXSICCATED) [Concomitant]
  14. FOLIC ACID [Concomitant]
  15. PREDNISOLONE [Concomitant]
  16. XIPAMIDE (XIPAMIDE) [Concomitant]

REACTIONS (3)
  - ALVEOLITIS [None]
  - DRUG INTERACTION [None]
  - TRANSAMINASES INCREASED [None]
